FAERS Safety Report 9312869 (Version 2)
Quarter: 2013Q3

REPORT INFORMATION
  Report Type: Spontaneous
  Country: DE (occurrence: DE)
  Receive Date: 20130528
  Receipt Date: 20130801
  Transmission Date: 20140515
  Serious: Yes (Hospitalization, Other)
  Sender: FDA-Public Use
  Company Number: DE-ABBOTT-13P-062-1095823-00

PATIENT
  Age: 25 Year
  Sex: Female
  Weight: 64 kg

DRUGS (3)
  1. HUMIRA [Suspect]
     Indication: CROHN^S DISEASE
     Route: 058
     Dates: start: 20111223, end: 20130301
  2. AZATHIOPRINE [Suspect]
     Indication: CROHN^S DISEASE
     Dates: start: 201209, end: 201212
  3. AZATHIOPRINE [Suspect]
     Dates: start: 201304

REACTIONS (3)
  - Crohn^s disease [Not Recovered/Not Resolved]
  - Cervix neoplasm [Not Recovered/Not Resolved]
  - Myalgia [Unknown]
